FAERS Safety Report 4649871-4 (Version None)
Quarter: 2005Q2

REPORT INFORMATION
  Report Type: 
  Country: None (occurrence: None)
  Receive Date: 20050502
  Receipt Date: 20040426
  Transmission Date: 20051028
  Serious: Yes (Death)
  Sender: FDA-Public Use
  Company Number: US-MERCK-0405USA00267

PATIENT
  Age: 63 Year
  Sex: Female
  Weight: 73 kg

DRUGS (25)
  1. EMEND [Suspect]
     Indication: PROPHYLAXIS OF NAUSEA AND VOMITING
     Route: 048
     Dates: start: 20040326, end: 20040326
  2. EMEND [Suspect]
     Route: 048
     Dates: start: 20040327, end: 20040404
  3. ZOFRAN [Concomitant]
     Route: 042
  4. DACARBAZINE [Concomitant]
     Route: 042
     Dates: start: 20040301
  5. VINBLASTINE SULFATE [Suspect]
     Route: 042
     Dates: start: 20040301
  6. PROLEUKIN [Concomitant]
     Route: 042
     Dates: start: 20040301
  7. PROLEUKIN [Concomitant]
     Route: 042
  8. PROLEUKIN [Concomitant]
     Route: 042
  9. PROLEUKIN [Concomitant]
     Route: 042
  10. CISPLATIN [Concomitant]
     Route: 042
     Dates: start: 20040101
  11. PROTONIX [Concomitant]
     Route: 065
  12. ATIVAN [Concomitant]
     Indication: NAUSEA
     Route: 065
  13. OPIUM [Concomitant]
     Route: 065
  14. INTRON A [Concomitant]
     Route: 058
  15. BENADRYL [Concomitant]
     Route: 065
  16. TYLENOL [Concomitant]
     Route: 065
  17. REGLAN [Concomitant]
     Route: 065
  18. BACTROBAN [Concomitant]
     Route: 065
  19. EUCERIN CREME [Concomitant]
     Route: 065
  20. DEMEROL [Concomitant]
     Route: 065
  21. ATARAX [Concomitant]
     Route: 065
  22. LOMOTIL [Concomitant]
     Route: 065
  23. VASELINE [Concomitant]
     Route: 065
  24. NEUPOGEN [Concomitant]
     Route: 065
     Dates: start: 20040331, end: 20040402
  25. NEULASTA [Concomitant]
     Route: 065

REACTIONS (12)
  - ALPHA HAEMOLYTIC STREPTOCOCCAL INFECTION [None]
  - BLOOD CULTURE POSITIVE [None]
  - DRUG INTERACTION [None]
  - ENTEROBACTER BACTERAEMIA [None]
  - HYPOTENSION [None]
  - KLEBSIELLA BACTERAEMIA [None]
  - MEDICATION ERROR [None]
  - PANCYTOPENIA [None]
  - PYREXIA [None]
  - SEPTIC SHOCK [None]
  - SYNCOPE [None]
  - TACHYCARDIA [None]
